FAERS Safety Report 5592550-X (Version None)
Quarter: 2008Q1

REPORT INFORMATION
  Report Type: 
  Country: None (occurrence: None)
  Receive Date: 20080111
  Receipt Date: 20080103
  Transmission Date: 20080703
  Serious: Yes (Other)
  Sender: FDA-Public Use
  Company Number: 18120

PATIENT
  Age: 48 Year
  Sex: Female

DRUGS (2)
  1. MITOXANTRONE [Suspect]
     Indication: SECONDARY PROGRESSIVE MULTIPLE SCLEROSIS
     Dosage: 9 MG/M2 FREQ IV
     Route: 042
  2. MITOXANTRONE [Suspect]
     Indication: SECONDARY PROGRESSIVE MULTIPLE SCLEROSIS
     Dosage: 9 MG/M2 FREQ IV
     Route: 042

REACTIONS (1)
  - PANCREATITIS ACUTE [None]
